FAERS Safety Report 7799084-2 (Version None)
Quarter: 2011Q4

REPORT INFORMATION
  Report Type: 
  Country: None (occurrence: None)
  Receive Date: 20111006
  Receipt Date: 20111003
  Transmission Date: 20120403
  Serious: Yes (Other)
  Sender: FDA-Public Use
  Company Number: JP-PFIZER INC-2011223508

PATIENT

DRUGS (4)
  1. CANDESARTAN CILEXETIL AND HYDROCHLOROTHIAZIDE [Concomitant]
     Dosage: UNK
  2. DOXAZOSIN MESYLATE [Suspect]
     Indication: HYPERTENSION
     Dosage: 2 MG DAILY
     Route: 048
     Dates: start: 20110723, end: 20110729
  3. BISOPROLOL FUMARATE [Concomitant]
     Dosage: 5 MG DAILY
  4. ADALAT [Concomitant]
     Dosage: 40 MG DAILY

REACTIONS (3)
  - RENAL DISORDER [None]
  - PALPITATIONS [None]
  - GLOMERULAR FILTRATION RATE DECREASED [None]
